FAERS Safety Report 7926298 (Version 2)
Quarter: 2014Q2

REPORT INFORMATION
  Report Type: Report from Study
  Country: US (occurrence: US)
  Receive Date: 20110502
  Receipt Date: 20140507
  Transmission Date: 20141212
  Serious: Yes (Disabling)
  Sender: FDA-Public Use
  Company Number: US-ASTRAZENECA-2010SE60465

PATIENT
  Age: 66 Year
  Sex: Female
  Weight: 74.8 kg

DRUGS (13)
  1. NEXIUM [Suspect]
     Indication: OESOPHAGEAL ULCER
     Route: 048
  2. NEXIUM [Suspect]
     Indication: HIATUS HERNIA
     Route: 048
  3. NEXIUM [Suspect]
     Indication: GASTROINTESTINAL MOTILITY DISORDER
     Route: 048
  4. NEXIUM [Suspect]
     Indication: OESOPHAGEAL ULCER
     Route: 048
     Dates: start: 2004, end: 201310
  5. NEXIUM [Suspect]
     Indication: HIATUS HERNIA
     Route: 048
     Dates: start: 2004, end: 201310
  6. NEXIUM [Suspect]
     Indication: GASTROINTESTINAL MOTILITY DISORDER
     Route: 048
     Dates: start: 2004, end: 201310
  7. LISINOPRIL [Suspect]
     Indication: BLOOD PRESSURE ABNORMAL
     Route: 048
  8. PRILOSEC OTC [Suspect]
     Indication: OESOPHAGEAL ULCER
     Route: 048
  9. PRILOSEC OTC [Suspect]
     Indication: HIATUS HERNIA
     Route: 048
  10. PRILOSEC OTC [Suspect]
     Indication: GASTROINTESTINAL MOTILITY DISORDER
     Route: 048
  11. PRILOSEC OTC [Suspect]
     Indication: OESOPHAGEAL ULCER
     Route: 048
  12. PRILOSEC OTC [Suspect]
     Indication: HIATUS HERNIA
     Route: 048
  13. PRILOSEC OTC [Suspect]
     Indication: GASTROINTESTINAL MOTILITY DISORDER
     Route: 048

REACTIONS (11)
  - Activities of daily living impaired [Unknown]
  - Regurgitation [Unknown]
  - Oesophageal pain [Unknown]
  - Flatulence [Unknown]
  - Eructation [Unknown]
  - Burning sensation [Unknown]
  - Vomiting [Unknown]
  - Inappropriate schedule of drug administration [Unknown]
  - Drug dose omission [Unknown]
  - Intentional product misuse [Unknown]
  - Off label use [Unknown]
